FAERS Safety Report 17831949 (Version 1)
Quarter: 2020Q2

REPORT INFORMATION
  Report Type: Spontaneous
  Country: US (occurrence: US)
  Receive Date: 20200527
  Receipt Date: 20200527
  Transmission Date: 20200714
  Serious: No
  Sender: FDA-Public Use
  Company Number: US-ROCHE-2391611

PATIENT
  Age: 39 Year
  Sex: Female
  Weight: 53.57 kg

DRUGS (1)
  1. OCREVUS [Suspect]
     Active Substance: OCRELIZUMAB
     Indication: PRIMARY PROGRESSIVE MULTIPLE SCLEROSIS
     Route: 042

REACTIONS (3)
  - Fatigue [Unknown]
  - Arthralgia [Unknown]
  - Product dose omission [Unknown]

NARRATIVE: CASE EVENT DATE: 20190822
